FAERS Safety Report 18349379 (Version 1)
Quarter: 2020Q4

REPORT INFORMATION
  Report Type: Spontaneous
  Country: US (occurrence: US)
  Receive Date: 20201006
  Receipt Date: 20201006
  Transmission Date: 20210114
  Serious: No
  Sender: FDA-Public Use
  Company Number: US-MYLANLABS-2020M1083424

PATIENT
  Sex: Male
  Weight: 98 kg

DRUGS (1)
  1. WIXELA INHUB [Suspect]
     Active Substance: FLUTICASONE PROPIONATE\SALMETEROL XINAFOATE
     Indication: ASTHMA
     Dosage: UNK UNK, QOD(100/50 MCG, EVERY OTHER DAY)
     Route: 055

REACTIONS (2)
  - Device issue [Unknown]
  - Inappropriate schedule of product administration [Not Recovered/Not Resolved]
